FAERS Safety Report 8611351 (Version 2)
Quarter: 2012Q4

REPORT INFORMATION
  Report Type: 
  Country: CO (occurrence: CO)
  Receive Date: 20120613
  Receipt Date: 20120914
  Transmission Date: 20130627
  Serious: Yes (Other)
  Sender: FDA-Public Use
  Company Number: CO-AMGEN-COLSP2012034911

PATIENT
  Age: 74 Year
  Sex: Female

DRUGS (7)
  1. ENBREL [Suspect]
     Indication: RHEUMATOID ARTHRITIS
     Dosage: 50 mg, weekly
     Route: 058
     Dates: start: 2010
  2. METHOTREXATE [Concomitant]
     Indication: RHEUMATOID ARTHRITIS
     Dosage: UNK
     Dates: start: 2002
  3. PREDNISOLONE [Concomitant]
     Indication: RHEUMATOID ARTHRITIS
     Dosage: UNK
     Dates: start: 2002
  4. ARALEN                             /00001002/ [Concomitant]
     Indication: RHEUMATOID ARTHRITIS
     Dosage: UNK
     Dates: start: 2002
  5. FOLIC ACID [Concomitant]
     Dosage: UNK
  6. CALCIUM WITH VITAMIN D             /01233101/ [Concomitant]
     Dosage: UNK
  7. ACETAMINOPHEN [Concomitant]
     Dosage: UNK

REACTIONS (6)
  - Respiratory distress [Not Recovered/Not Resolved]
  - Accident [Not Recovered/Not Resolved]
  - Back pain [Not Recovered/Not Resolved]
  - Haematoma [Not Recovered/Not Resolved]
  - Drug dose omission [Not Recovered/Not Resolved]
  - Hypersensitivity [Not Recovered/Not Resolved]
